FAERS Safety Report 4843361-1 (Version None)
Quarter: 2005Q4

REPORT INFORMATION
  Report Type: 
  Country: None (occurrence: None)
  Receive Date: 20051201
  Receipt Date: 20051004
  Transmission Date: 20060501
  Serious: Yes (Hospitalization, Other)
  Sender: FDA-Public Use
  Company Number: US-MERCK-0510USA03034

PATIENT
  Age: 63 Year
  Sex: Male
  Weight: 107 kg

DRUGS (15)
  1. CODEINE [Concomitant]
     Route: 065
  2. IBUPROFEN [Concomitant]
     Route: 065
  3. ZANAFLEX [Concomitant]
     Route: 065
  4. ACETAMINOPHEN [Concomitant]
     Route: 065
  5. FUROSEMIDE [Concomitant]
     Route: 065
  6. POTASSIUM (UNSPECIFIED) [Concomitant]
     Route: 065
  7. ULTRAM [Concomitant]
     Route: 065
  8. ALBUTEROL [Concomitant]
     Route: 065
  9. THEOCHRON [Concomitant]
     Route: 065
  10. VIOXX [Suspect]
     Indication: SPONDYLITIS
     Route: 048
     Dates: start: 20010409, end: 20030905
  11. TARKA [Concomitant]
     Route: 065
  12. SKELAXIN [Concomitant]
     Route: 065
  13. XENICAL [Concomitant]
     Route: 065
  14. COVERA-HS [Concomitant]
     Route: 065
  15. PLAVIX [Concomitant]
     Route: 065

REACTIONS (4)
  - CARDIAC DISORDER [None]
  - CEREBROVASCULAR ACCIDENT [None]
  - HERNIA [None]
  - MYOCARDIAL INFARCTION [None]
